FAERS Safety Report 5889395-X (Version None)
Quarter: 2008Q3

REPORT INFORMATION
  Report Type: 
  Country: None (occurrence: None)
  Receive Date: 20080919
  Receipt Date: 20080913
  Transmission Date: 20090109
  Serious: Yes (Death, Other)
  Sender: FDA-Public Use
  Company Number: TR-AVENTIS-200817170GDDC

PATIENT
  Age: 65 Year
  Sex: Male
  Weight: 57.9 kg

DRUGS (4)
  1. PLACEBO [Suspect]
     Indication: NON-SMALL CELL LUNG CANCER
     Route: 042
     Dates: start: 20080711, end: 20080711
  2. DOCETAXEL [Suspect]
     Indication: NON-SMALL CELL LUNG CANCER
     Route: 042
     Dates: start: 20080711, end: 20080711
  3. NORVASC [Concomitant]
     Dosage: DOSE: UNK'
     Dates: start: 20080530
  4. TRAMADOL HCL [Concomitant]
     Dosage: DOSE: UNK
     Dates: start: 20080606

REACTIONS (4)
  - ANOREXIA [None]
  - CONSTIPATION [None]
  - HYPOTENSION [None]
  - PYREXIA [None]
